FAERS Safety Report 18962483 (Version 2)
Quarter: 2021Q1

REPORT INFORMATION
  Report Type: Report from Study
  Country: ZA (occurrence: ZA)
  Receive Date: 20210303
  Receipt Date: 20210315
  Transmission Date: 20210420
  Serious: Yes (Death, Other)
  Sender: FDA-Public Use
  Company Number: NVSC2021ZA048651

PATIENT
  Age: 83 Year
  Sex: Female

DRUGS (1)
  1. ACLASTA [Suspect]
     Active Substance: ZOLEDRONIC ACID
     Indication: OSTEOPOROSIS
     Dosage: 5 MG, ANNUALLY (FORMULATION: SOLUTION)
     Route: 042
     Dates: start: 20110513, end: 20140818

REACTIONS (10)
  - Hypothyroidism [Unknown]
  - Renal artery stenosis [Unknown]
  - Anaemia [Unknown]
  - Gastrointestinal haemorrhage [Unknown]
  - Death [Fatal]
  - Atrial fibrillation [Unknown]
  - Depression [Unknown]
  - Incisional hernia [Unknown]
  - Hypertension [Unknown]
  - Dementia [Unknown]

NARRATIVE: CASE EVENT DATE: 20180818
